FAERS Safety Report 16038315 (Version 5)
Quarter: 2019Q2

REPORT INFORMATION
  Report Type: Spontaneous
  Country: US (occurrence: US)
  Receive Date: 20190305
  Receipt Date: 20190530
  Transmission Date: 20190711
  Serious: Yes (Hospitalization, Other)
  Sender: FDA-Public Use
  Company Number: US-PFIZER INC-2019089641

PATIENT
  Age: 76 Year
  Sex: Male
  Weight: 88.44 kg

DRUGS (22)
  1. MAXZIDE [Concomitant]
     Active Substance: HYDROCHLOROTHIAZIDE\TRIAMTERENE
     Dosage: 1 DF, 1X/DAY (37.5-25 MG PER TABLET 1 TAB(S) ORAL MORNING)
     Route: 048
  2. LEVAQUIN [Concomitant]
     Active Substance: LEVOFLOXACIN
     Dosage: 750 MG, DAILY (TAKE 1 TABLET (750 MG TOTAL) BY MOUTH DAILY FOR 4 DOSES)
     Route: 048
     Dates: end: 20181026
  3. PROTONIX [OMEPRAZOLE] [Concomitant]
     Active Substance: OMEPRAZOLE
     Dosage: 20 UNK, UNK
     Route: 048
  4. ZYRTEC [Concomitant]
     Active Substance: CETIRIZINE HYDROCHLORIDE
     Dosage: 10 MG, DAILY
     Route: 048
  5. APIXABAN [Suspect]
     Active Substance: APIXABAN
     Dosage: 5 MG, 2X/DAY
     Route: 048
     Dates: start: 20180528, end: 20181022
  6. AMIODARONE HCL [Suspect]
     Active Substance: AMIODARONE HYDROCHLORIDE
     Dosage: 200 MG, DAILY
     Route: 048
     Dates: start: 20180608, end: 20181022
  7. HYDROCHLOROTHIAZIDE. [Concomitant]
     Active Substance: HYDROCHLOROTHIAZIDE
     Indication: HYPERTENSION
     Dosage: 25 MG, DAILY
     Route: 048
  8. HYDROCHLOROTHIAZIDE. [Concomitant]
     Active Substance: HYDROCHLOROTHIAZIDE
     Dosage: 25 MG, UNK
     Route: 048
     Dates: start: 20171023
  9. NORVASC [Concomitant]
     Active Substance: AMLODIPINE BESYLATE
     Dosage: 5 MG, QD
     Route: 048
  10. CALCIUM 600 + D [Concomitant]
     Active Substance: CALCIUM\VITAMIN D
     Dosage: 1 DF, DAILY (TAKE 1 TABLET BY MOUTH DAILY)
     Route: 048
  11. PROTONIX [OMEPRAZOLE] [Concomitant]
     Active Substance: OMEPRAZOLE
     Indication: BARRETT^S OESOPHAGUS
     Dosage: 40 MG, DAILY
     Route: 048
     Dates: start: 20171015
  12. APIXABAN [Suspect]
     Active Substance: APIXABAN
     Indication: CEREBROVASCULAR ACCIDENT PROPHYLAXIS
     Dosage: 5 MG, BID
     Route: 065
     Dates: start: 201805
  13. MAGNESIUM CARBONATE NICHIIKO [Concomitant]
     Dosage: 500 MG, DAILY
     Route: 048
  14. ZYRTEC [Concomitant]
     Active Substance: CETIRIZINE HYDROCHLORIDE
     Indication: RHINITIS ALLERGIC
     Dosage: 5 MG, DAILY
     Route: 048
  15. AMIODARONE HCL [Suspect]
     Active Substance: AMIODARONE HYDROCHLORIDE
     Indication: ATRIAL FIBRILLATION
     Dosage: UNK MG, UNK
     Route: 065
     Dates: start: 201805
  16. NORVASC [Concomitant]
     Active Substance: AMLODIPINE BESYLATE
     Dosage: 5 MG, DAILY
     Route: 048
     Dates: end: 20181026
  17. NIVOLUMAB [Suspect]
     Active Substance: NIVOLUMAB
     Indication: METASTATIC MALIGNANT MELANOMA
     Dosage: 400 UG, UNK ( 400 UG 1UQ MOUTH, ONGOING)
     Route: 048
     Dates: start: 20181114
  18. ROBITUSSIN DM [Concomitant]
     Active Substance: DEXTROMETHORPHAN HYDROBROMIDE\GUAIFENESIN
     Dosage: UNK MG/ML, AS NEEDED (10-100MG/5ML LIQUID)
     Route: 048
     Dates: end: 20181026
  19. AMLODIPINE [Concomitant]
     Active Substance: AMLODIPINE BESYLATE
     Indication: HYPERTENSION
     Dosage: UNK2X/DAY(5MG 1/2 AM, 1/2 PM)
     Route: 048
     Dates: start: 20171030
  20. BENZONATATE. [Concomitant]
     Active Substance: BENZONATATE
     Indication: COUGH
     Dosage: 100 MG, 3X/DAY(AS NEEDED)
     Route: 048
     Dates: end: 20181026
  21. BUDESONIDE. [Concomitant]
     Active Substance: BUDESONIDE
     Dosage: UNK UNK, AS NEEDED
     Route: 045
  22. FLONASE [Concomitant]
     Active Substance: FLUTICASONE PROPIONATE
     Dosage: 100 UG, DAILY (2SPRAYS BY NASAL ROUTE DAILY)
     Route: 045
     Dates: end: 20181026

REACTIONS (6)
  - Cardiac failure chronic [Recovered/Resolved]
  - Dyspnoea [Recovered/Resolved]
  - Pulmonary toxicity [Recovered/Resolved]
  - Pneumonia [Recovered/Resolved]
  - Amyloidosis [Unknown]
  - Weight increased [Recovered/Resolved]

NARRATIVE: CASE EVENT DATE: 201809
